FAERS Safety Report 11180169 (Version 1)
Quarter: 2015Q2

REPORT INFORMATION
  Report Type: Spontaneous
  Country: FR (occurrence: FR)
  Receive Date: 20150611
  Receipt Date: 20150611
  Transmission Date: 20150821
  Serious: Yes (Other)
  Sender: FDA-Public Use
  Company Number: FR-SA-2015SA080422

PATIENT
  Age: 81 Year
  Sex: Female

DRUGS (10)
  1. LIPANTHYL [Concomitant]
     Active Substance: FENOFIBRATE
     Dosage: STRENGTH :145 MG
     Route: 048
  2. ISOPTIN [Concomitant]
     Active Substance: VERAPAMIL HYDROCHLORIDE
     Dosage: STRENGTH :240 MG
     Route: 048
  3. LOVENOX [Suspect]
     Active Substance: ENOXAPARIN SODIUM
     Route: 058
     Dates: start: 20150428, end: 20150430
  4. NOCTAMIDE [Concomitant]
     Active Substance: LORMETAZEPAM
     Route: 048
  5. ZOVIRAX [Suspect]
     Active Substance: ACYCLOVIR
     Route: 042
     Dates: start: 20150427, end: 20150430
  6. LYRICA [Concomitant]
     Active Substance: PREGABALIN
     Dosage: STRENGTH :25 MG
     Route: 048
  7. LASILIX [Concomitant]
     Active Substance: FUROSEMIDE
     Dosage: STRENGTH:40 MG
     Route: 048
  8. MEDIATENSYL [Concomitant]
     Active Substance: URAPIDIL
     Dosage: STRENGTH:160 G
     Route: 048
  9. ENALAPRIL MALEATE. [Concomitant]
     Active Substance: ENALAPRIL MALEATE
     Dosage: STRENGTH :20 MG
     Route: 048
  10. OXYCONTIN [Concomitant]
     Active Substance: OXYCODONE HYDROCHLORIDE
     Route: 048
     Dates: start: 20150430

REACTIONS (2)
  - Acute kidney injury [Recovered/Resolved]
  - Hyperkalaemia [Recovered/Resolved]

NARRATIVE: CASE EVENT DATE: 20150430
